FAERS Safety Report 7721630-5 (Version None)
Quarter: 2011Q3

REPORT INFORMATION
  Report Type: 
  Country: None (occurrence: None)
  Receive Date: 20110831
  Receipt Date: 20110819
  Transmission Date: 20111222
  Serious: Yes (Hospitalization)
  Sender: FDA-Public Use
  Company Number: US-GLAXOSMITHKLINE-A0747133A

PATIENT
  Age: 42 Year
  Sex: Male
  Weight: 75 kg

DRUGS (10)
  1. AVANDIA [Suspect]
     Indication: TYPE 2 DIABETES MELLITUS
     Dosage: 4MG PER DAY
     Route: 048
     Dates: start: 20010101, end: 20070601
  2. VASOTEC [Concomitant]
  3. PLAVIX [Concomitant]
  4. TENORMIN [Concomitant]
  5. PAXIL [Concomitant]
  6. LANTUS [Concomitant]
  7. GLUCOTROL [Concomitant]
  8. IMDUR [Concomitant]
  9. TESSALON [Concomitant]
  10. AMARYL [Concomitant]

REACTIONS (3)
  - CORONARY ARTERY DISEASE [None]
  - MYOCARDIAL INFARCTION [None]
  - CEREBROVASCULAR ACCIDENT [None]
